FAERS Safety Report 14335067 (Version 2)
Quarter: 2018Q1

REPORT INFORMATION
  Report Type: Spontaneous
  Country: US (occurrence: US)
  Receive Date: 20171229
  Receipt Date: 20180212
  Transmission Date: 20180509
  Serious: Yes (Hospitalization)
  Sender: FDA-Public Use
  Company Number: US-009507513-1712USA012808

PATIENT
  Age: 45 Year
  Sex: Female

DRUGS (6)
  1. EMEND [Suspect]
     Active Substance: APREPITANT
     Indication: PROPHYLAXIS
     Dosage: 150 MG ON DAY 1
     Route: 042
  2. OLANZAPINE. [Concomitant]
     Active Substance: OLANZAPINE
     Indication: PROPHYLAXIS
     Dosage: 5 MG IN THE MORNING AND 10 MG IN THE EVENING
  3. DECADRON [Suspect]
     Active Substance: DEXAMETHASONE
     Dosage: 10 MG ON DAY 1
     Route: 042
  4. DECADRON [Suspect]
     Active Substance: DEXAMETHASONE
     Dosage: 8 MG ON DAYS 2 AND 3
     Route: 042
  5. PALONOSETRON HYDROCHLORIDE. [Concomitant]
     Active Substance: PALONOSETRON HYDROCHLORIDE
     Indication: PROPHYLAXIS
     Dosage: 0.25 MICROGRAM, GIVEN ON DAYS 1 AND 3
     Route: 042
  6. LORAZEPAM. [Concomitant]
     Active Substance: LORAZEPAM
     Indication: PROPHYLAXIS
     Dosage: 1 MG, TID
     Route: 042

REACTIONS (1)
  - Drug ineffective [Unknown]
